FAERS Safety Report 14112141 (Version 3)
Quarter: 2017Q4

REPORT INFORMATION
  Report Type: Spontaneous
  Country: DE (occurrence: DE)
  Receive Date: 20171020
  Receipt Date: 20171120
  Transmission Date: 20180321
  Serious: Yes (Hospitalization, Other)
  Sender: FDA-Public Use
  Company Number: DE-INTERCEPT-PMOCA2017001168

PATIENT

DRUGS (2)
  1. OCALIVA [Suspect]
     Active Substance: OBETICHOLIC ACID
     Indication: BILIARY CIRRHOSIS PRIMARY
     Dosage: 5 MG, QD
     Dates: start: 20170721, end: 20170920
  2. URSODEOXYCHOLIC ACID [Concomitant]
     Active Substance: URSODIOL
     Dosage: 750 MG, QD

REACTIONS (15)
  - Ascites [Unknown]
  - Eastern Cooperative Oncology Group performance status worsened [Unknown]
  - Hepatic cirrhosis [Unknown]
  - Jaundice [Unknown]
  - Blood alkaline phosphatase increased [Unknown]
  - Cholelithiasis [Unknown]
  - Nutritional condition abnormal [Unknown]
  - Hepatic failure [Unknown]
  - C-reactive protein increased [Unknown]
  - Oedema peripheral [Unknown]
  - Liver function test increased [Unknown]
  - Drug prescribing error [Unknown]
  - Pruritus [Unknown]
  - Splenomegaly [Unknown]
  - Blood bilirubin increased [Unknown]

NARRATIVE: CASE EVENT DATE: 2017
